FAERS Safety Report 5773171-2 (Version None)
Quarter: 2008Q2

REPORT INFORMATION
  Report Type: 
  Country: None (occurrence: None)
  Receive Date: 20080616
  Receipt Date: 20080312
  Transmission Date: 20081010
  Serious: No
  Sender: FDA-Public Use
  Company Number: US-BAYER-200712783BCC

PATIENT
  Age: 61 Year
  Sex: Male
  Weight: 84 kg

DRUGS (6)
  1. ALEVE (CAPLET) [Suspect]
     Indication: NECK PAIN
     Dosage: TOTAL DAILY DOSE: 220 MG  UNIT DOSE: 220 MG
     Route: 048
     Dates: start: 20070827, end: 20070827
  2. GATORADE RAIN [Suspect]
  3. ZOCOR [Concomitant]
  4. ASPIRIN [Concomitant]
  5. NASONEX [Concomitant]
  6. ALBUTEROL [Concomitant]

REACTIONS (1)
  - MIGRAINE [None]
